FAERS Safety Report 4441783-4 (Version None)
Quarter: 2004Q3

REPORT INFORMATION
  Report Type: 
  Country: None (occurrence: None)
  Receive Date: 20040907
  Receipt Date: 20040303
  Transmission Date: 20050211
  Serious: Yes (Life-Threatening)
  Sender: FDA-Public Use
  Company Number: JP-MERCK-0403USA00661

PATIENT
  Age: 15 Year
  Sex: Male

DRUGS (9)
  1. CEFTAZIDIME [Concomitant]
     Indication: SEPSIS
     Route: 065
     Dates: start: 20040220
  2. PRIMAXIN [Suspect]
     Indication: SEPSIS
     Route: 042
     Dates: start: 20040221, end: 20040303
  3. DOBUTAMINE HYDROCHLORIDE [Concomitant]
     Indication: SEPSIS
     Route: 065
     Dates: start: 20040220, end: 20040308
  4. DOBUTAMINE HYDROCHLORIDE [Concomitant]
     Indication: SHOCK
     Route: 065
     Dates: start: 20040220, end: 20040308
  5. DOPAMINE HYDROCHLORIDE [Concomitant]
     Indication: NEUTROPENIA
     Route: 065
     Dates: start: 20040220, end: 20040308
  6. DOPAMINE HYDROCHLORIDE [Concomitant]
     Indication: SHOCK
     Route: 065
     Dates: start: 20040220, end: 20040308
  7. FILGRASTIM [Concomitant]
     Indication: NEUTROPENIA
     Route: 065
     Dates: start: 20040210, end: 20040302
  8. MICAFUNGIN [Suspect]
     Indication: SEPSIS
     Route: 042
     Dates: start: 20040219, end: 20040303
  9. MINOCYCLINE HYDROCHLORIDE [Concomitant]
     Indication: SEPSIS
     Route: 065
     Dates: start: 20040219, end: 20040302

REACTIONS (1)
  - HAEMOLYTIC URAEMIC SYNDROME [None]
